FAERS Safety Report 9249291 (Version 1)
Quarter: 2013Q2

REPORT INFORMATION
  Report Type: Spontaneous
  Country: US (occurrence: US)
  Receive Date: 20130423
  Receipt Date: 20130423
  Transmission Date: 20140414
  Serious: No
  Sender: FDA-Public Use
  Company Number: US-PFIZER INC-2013125138

PATIENT
  Sex: Female

DRUGS (2)
  1. TOVIAZ [Suspect]
     Indication: MICTURITION URGENCY
     Dosage: 8 MG, UNK
  2. TOVIAZ [Suspect]
     Indication: INCONTINENCE

REACTIONS (1)
  - Drug effect incomplete [Unknown]
